FAERS Safety Report 5882697-2 (Version None)
Quarter: 2008Q3

REPORT INFORMATION
  Report Type: 
  Country: None (occurrence: None)
  Receive Date: 20080913
  Receipt Date: 20080812
  Transmission Date: 20090109
  Serious: No
  Sender: FDA-Public Use
  Company Number: US-ABBOTT-08P-163-0470645-00

PATIENT
  Sex: Male
  Weight: 113.5 kg

DRUGS (10)
  1. HUMIRA [Suspect]
     Indication: RHEUMATOID ARTHRITIS
     Route: 050
     Dates: start: 20050101
  2. POTASSIUM CHLORIDE [Concomitant]
     Indication: MINERAL SUPPLEMENTATION
     Dates: start: 19890101
  3. DIGOXIN [Concomitant]
     Indication: CARDIAC DISORDER
  4. ATORVASTATIN CALCIUM [Concomitant]
     Indication: BLOOD CHOLESTEROL
  5. GABAPENTIN [Concomitant]
     Indication: DIABETIC NEUROPATHY
  6. ENALAPRIL MALEATE [Concomitant]
     Indication: CARDIAC DISORDER
  7. ETODOLAC [Concomitant]
     Indication: ARTHRITIS
  8. ALLOPURINOL [Concomitant]
     Indication: GOUT
  9. METHOTREXATE [Concomitant]
     Indication: ARTHRITIS
     Route: 050
     Dates: start: 20050101
  10. METFORMIN HCL [Concomitant]
     Indication: DIABETES MELLITUS
     Dosage: 1 OR 2 A DAY

REACTIONS (1)
  - PROCEDURAL COMPLICATION [None]
